FAERS Safety Report 9861175 (Version 1)
Quarter: 2014Q1

REPORT INFORMATION
  Report Type: Spontaneous
  Country: US (occurrence: None)
  Receive Date: 20140131
  Receipt Date: 20140131
  Transmission Date: 20141002
  Serious: Yes (Disabling)
  Sender: FDA-Public Use
  Company Number: None

PATIENT
  Age: 84 Year
  Sex: Female
  Weight: 52.16 kg

DRUGS (2)
  1. LYRICA [Suspect]
     Indication: NEUROPATHY PERIPHERAL
     Route: 048
     Dates: start: 20140120, end: 20140125
  2. LYRICA [Suspect]
     Indication: PAIN
     Route: 048
     Dates: start: 20140120, end: 20140125

REACTIONS (9)
  - Somnolence [None]
  - Lethargy [None]
  - Dysarthria [None]
  - Asthenia [None]
  - Abasia [None]
  - Disturbance in attention [None]
  - Hypersomnia [None]
  - VIIth nerve paralysis [None]
  - Eyelid ptosis [None]
